FAERS Safety Report 7056997-7 (Version None)
Quarter: 2010Q4

REPORT INFORMATION
  Report Type: 
  Country: None (occurrence: None)
  Receive Date: 20101021
  Receipt Date: 20101021
  Transmission Date: 20110411
  Serious: Yes (Other)
  Sender: FDA-Public Use
  Company Number: None

PATIENT
  Age: 51 Year
  Sex: Female
  Weight: 63.5036 kg

DRUGS (1)
  1. WALGREENS EXTRA STRENGTH COOL N' HEAT PATCH SAYS ^MADE IN KOREA^ [Suspect]
     Indication: MYALGIA
     Dosage: 1 PATCH 3 1/8^ X 4 5/8 ^
     Dates: start: 20100902

REACTIONS (5)
  - APPLICATION SITE BURN [None]
  - CHEMICAL INJURY [None]
  - NERVE INJURY [None]
  - PAIN [None]
  - SCAR [None]
